FAERS Safety Report 4463304-2 (Version None)
Quarter: 2004Q3

REPORT INFORMATION
  Report Type: 
  Country: None (occurrence: None)
  Receive Date: 20040930
  Receipt Date: 20040727
  Transmission Date: 20050211
  Serious: No
  Sender: FDA-Public Use
  Company Number: US-BRISTOL-MYERS SQUIBB COMPANY-12652061

PATIENT
  Age: 33 Year
  Sex: Male
  Weight: 61 kg

DRUGS (4)
  1. REYATAZ [Suspect]
     Indication: HIV INFECTION
     Dosage: INTERRUPTED ON 7/23, 7/25, + 7/26
     Route: 048
     Dates: start: 20040703
  2. SUSTIVA [Concomitant]
  3. NORVIR [Concomitant]
  4. RANITIDINE [Concomitant]

REACTIONS (3)
  - HEPATITIS B [None]
  - IRRITABLE BOWEL SYNDROME [None]
  - OCULAR ICTERUS [None]
